FAERS Safety Report 5671431-7 (Version None)
Quarter: 2008Q1

REPORT INFORMATION
  Report Type: 
  Country: None (occurrence: None)
  Receive Date: 20080313
  Receipt Date: 20080228
  Transmission Date: 20080703
  Serious: Yes (Other)
  Sender: FDA-Public Use
  Company Number: 8018940

PATIENT
  Sex: Female
  Weight: 55 kg

DRUGS (6)
  1. XYREM [Suspect]
     Indication: CATAPLEXY
     Dosage: 2.25 MG 1/D PO
     Route: 048
     Dates: start: 20051213, end: 20060720
  2. XYREM [Suspect]
     Indication: NARCOLEPSY
     Dosage: 2.25 MG 1/D PO
     Route: 048
     Dates: start: 20051213, end: 20060720
  3. METHYLPHENIDATE HCL [Suspect]
     Indication: CATAPLEXY
     Dosage: 30 MG /D PO
     Route: 048
     Dates: start: 20050131, end: 20060720
  4. METHYLPHENIDATE HCL [Suspect]
     Indication: NARCOLEPSY
     Dosage: 30 MG /D PO
     Route: 048
     Dates: start: 20050131, end: 20060720
  5. IMIPRAMINE [Suspect]
     Indication: CATAPLEXY
     Dosage: 150 MG /D PO
     Route: 048
     Dates: start: 20031027
  6. IMIPRAMINE [Suspect]
     Indication: NARCOLEPSY
     Dosage: 150 MG /D PO
     Route: 048
     Dates: start: 20031027

REACTIONS (3)
  - DRUG EXPOSURE DURING PREGNANCY [None]
  - FATIGUE [None]
  - PREGNANCY [None]
